FAERS Safety Report 11258819 (Version 1)
Quarter: 2015Q3

REPORT INFORMATION
  Report Type: Spontaneous
  Country: US (occurrence: US)
  Receive Date: 20150710
  Receipt Date: 20150710
  Transmission Date: 20151125
  Serious: No
  Sender: FDA-Public Use
  Company Number: US-PFIZER INC-2015227795

PATIENT
  Age: 52 Year
  Sex: Male

DRUGS (4)
  1. OXYMORPHONE HCL OXYMORPHONE [Suspect]
     Active Substance: OXYMORPHONE
     Indication: PAIN IN EXTREMITY
  2. GABAPENTIN. [Suspect]
     Active Substance: GABAPENTIN
     Indication: NECK PAIN
     Dosage: 600 MG, 3X/DAY
  3. GABAPENTIN. [Suspect]
     Active Substance: GABAPENTIN
     Indication: PAIN IN EXTREMITY
  4. OXYMORPHONE HCL OXYMORPHONE [Suspect]
     Active Substance: OXYMORPHONE
     Indication: NECK PAIN
     Dosage: 5 MG, 2X/DAY

REACTIONS (2)
  - Pain [Unknown]
  - Fatigue [Unknown]
